FAERS Safety Report 5137015-4 (Version None)
Quarter: 2006Q4

REPORT INFORMATION
  Report Type: 
  Country: None (occurrence: None)
  Receive Date: 20061030
  Receipt Date: 20060707
  Transmission Date: 20070319
  Serious: Yes (Hospitalization)
  Sender: FDA-Public Use
  Company Number: PHBS2006JP10287

PATIENT
  Age: 76 Year
  Sex: Female

DRUGS (3)
  1. CLEANAL [Concomitant]
  2. GASCON [Concomitant]
  3. DIOVAN [Suspect]
     Dosage: UNK, UNK
     Route: 048

REACTIONS (2)
  - GENERAL PHYSICAL HEALTH DETERIORATION [None]
  - HYPONATRAEMIA [None]
